FAERS Safety Report 13725181 (Version 1)
Quarter: 2017Q3

REPORT INFORMATION
  Report Type: Spontaneous
  Country: FR (occurrence: FR)
  Receive Date: 20170706
  Receipt Date: 20170706
  Transmission Date: 20171127
  Serious: Yes (Other)
  Sender: FDA-Public Use
  Company Number: FR-BAYER-2017-128634

PATIENT
  Age: 35 Year
  Sex: Female
  Weight: 58 kg

DRUGS (1)
  1. MIRENA [Suspect]
     Active Substance: LEVONORGESTREL
     Indication: PRODUCT USED FOR UNKNOWN INDICATION
     Dosage: 20 MCG/24HR, CONT
     Route: 015
     Dates: start: 2015

REACTIONS (6)
  - Hair growth abnormal [Unknown]
  - Alopecia [Unknown]
  - Vaginal discharge [Unknown]
  - Breast pain [Unknown]
  - Breast swelling [Unknown]
  - Abdominal pain lower [Unknown]

NARRATIVE: CASE EVENT DATE: 2015
